FAERS Safety Report 8210074-8 (Version None)
Quarter: 2012Q1

REPORT INFORMATION
  Report Type: 
  Country: None (occurrence: None)
  Receive Date: 20120314
  Receipt Date: 20120126
  Transmission Date: 20120608
  Serious: No
  Sender: FDA-Public Use
  Company Number: US-ASTRAZENECA-2012SE06048

PATIENT
  Age: 68 Year
  Sex: Male

DRUGS (2)
  1. TOPROL-XL [Suspect]
     Route: 048
  2. LIPITOR [Concomitant]

REACTIONS (8)
  - HYPERTENSION [None]
  - THERAPEUTIC RESPONSE UNEXPECTED [None]
  - ABDOMINAL DISCOMFORT [None]
  - RASH [None]
  - PAIN [None]
  - DRUG DOSE OMISSION [None]
  - IRRITABLE BOWEL SYNDROME [None]
  - URTICARIA [None]
